FAERS Safety Report 7946682-9 (Version None)
Quarter: 2011Q4

REPORT INFORMATION
  Report Type: 
  Country: None (occurrence: None)
  Receive Date: 20111129
  Receipt Date: 20111123
  Transmission Date: 20120403
  Serious: Yes (Life-Threatening, Hospitalization)
  Sender: FDA-Public Use
  Company Number: CHPA2011CA016632

PATIENT
  Age: 15 Year
  Sex: Male
  Weight: 88 kg

DRUGS (4)
  1. ADVAIR DISKUS 100/50 [Concomitant]
  2. SINGULAIR [Concomitant]
  3. VENTOLIN [Concomitant]
  4. MAALOX EXTRA STRENGTH ANTACID WITH ANTI-GAS [Suspect]
     Dosage: 1 DF, UNK
     Route: 048

REACTIONS (5)
  - INCORRECT DOSE ADMINISTERED [None]
  - ELECTROCARDIOGRAM QT PROLONGED [None]
  - ASTHMA [None]
  - OVERDOSE [None]
  - ANAPHYLACTIC REACTION [None]
